FAERS Safety Report 9343092 (Version 2)
Quarter: 2013Q2

REPORT INFORMATION
  Report Type: Spontaneous
  Country: IT (occurrence: IT)
  Receive Date: 20130611
  Receipt Date: 20130617
  Transmission Date: 20140414
  Serious: Yes (Hospitalization)
  Sender: FDA-Public Use
  Company Number: PHHY2013IT057584

PATIENT
  Age: 1 Year
  Sex: Male
  Weight: 15 kg

DRUGS (1)
  1. LORAZEPAM [Suspect]
     Indication: MEDICATION ERROR
     Dosage: 0.5 MG, ONCE/SINGLE
     Route: 048
     Dates: start: 20130525, end: 20130525

REACTIONS (2)
  - Vomiting [Recovered/Resolved]
  - Accidental exposure to product by child [Recovered/Resolved]
